FAERS Safety Report 6669391-5 (Version None)
Quarter: 2010Q2

REPORT INFORMATION
  Report Type: 
  Country: None (occurrence: None)
  Receive Date: 20100406
  Receipt Date: 20100331
  Transmission Date: 20101027
  Serious: Yes (Hospitalization)
  Sender: FDA-Public Use
  Company Number: B0643672A

PATIENT
  Sex: Female

DRUGS (2)
  1. ESKAZOLE [Suspect]
     Dosage: 400MG SEE DOSAGE TEXT
     Route: 048
     Dates: start: 20090120
  2. KARDEGIC [Suspect]
     Dosage: 75MG PER DAY
     Route: 048
     Dates: start: 20090525

REACTIONS (2)
  - DEAFNESS UNILATERAL [None]
  - TINNITUS [None]
